FAERS Safety Report 24644213 (Version 3)
Quarter: 2024Q4

REPORT INFORMATION
  Report Type: Spontaneous
  Country: JP (occurrence: JP)
  Receive Date: 20241120
  Receipt Date: 20241222
  Transmission Date: 20250114
  Serious: Yes (Other)
  Sender: BRISTOL-MYERS SQUIBB COMPANY
  Company Number: JP-BRISTOL-MYERS SQUIBB COMPANY-2024-180493

PATIENT
  Age: 8 Decade
  Sex: Male

DRUGS (2)
  1. YERVOY [Suspect]
     Active Substance: IPILIMUMAB
     Indication: Renal cell carcinoma
     Route: 041
     Dates: start: 20241107
  2. OPDIVO [Suspect]
     Active Substance: NIVOLUMAB
     Indication: Renal cell carcinoma
     Route: 041
     Dates: start: 20241107

REACTIONS (3)
  - Anaphylactic reaction [Recovered/Resolved]
  - Seizure [Unknown]
  - Loss of consciousness [Unknown]

NARRATIVE: CASE EVENT DATE: 20241107
